FAERS Safety Report 8365391-8 (Version None)
Quarter: 2012Q2

REPORT INFORMATION
  Report Type: 
  Country: None (occurrence: None)
  Receive Date: 20120516
  Receipt Date: 20120507
  Transmission Date: 20120825
  Serious: Yes (Other)
  Sender: FDA-Public Use
  Company Number: JP-CELGENEUS-087-50794-12033036

PATIENT
  Sex: Female
  Weight: 49 kg

DRUGS (16)
  1. DORIPENEM MONOHYDRATE [Concomitant]
     Route: 065
     Dates: start: 20120219, end: 20120224
  2. ZOSYN [Concomitant]
     Route: 065
     Dates: start: 20120228, end: 20120303
  3. LANSOPRAZOLE [Concomitant]
     Route: 065
     Dates: start: 20111216
  4. AUGMENTIN [Concomitant]
     Route: 065
     Dates: start: 20111228, end: 20111231
  5. VIDAZA [Suspect]
     Dosage: 75 MILLIGRAM/SQ. METER
     Route: 058
     Dates: start: 20111216, end: 20111222
  6. MAGMITT [Concomitant]
     Route: 065
     Dates: start: 20111218, end: 20111231
  7. VIDAZA [Suspect]
     Dosage: 75 MILLIGRAM/SQ. METER
     Route: 065
     Dates: start: 20120214, end: 20120215
  8. VALSARTAN [Concomitant]
     Route: 065
     Dates: start: 20111216
  9. MAXIPIME [Concomitant]
     Route: 065
     Dates: start: 20120215, end: 20120219
  10. VIDAZA [Suspect]
     Dosage: 75 MILLIGRAM/SQ. METER
     Route: 058
     Dates: start: 20120116, end: 20120122
  11. LEVOFLOXACIN [Concomitant]
     Route: 065
     Dates: start: 20111228, end: 20111231
  12. LEVOFLOXACIN [Concomitant]
     Route: 065
     Dates: start: 20120115, end: 20120119
  13. ALENDRONATE SODIUM [Concomitant]
     Dosage: 35 MILLIGRAM
     Route: 065
     Dates: start: 20111216
  14. ITRACONAZOLE [Concomitant]
     Route: 065
     Dates: start: 20111214, end: 20120226
  15. FUNGUARD [Concomitant]
     Route: 065
     Dates: start: 20120220, end: 20120229
  16. VFEND [Concomitant]
     Route: 065
     Dates: start: 20120229, end: 20120320

REACTIONS (1)
  - SEPSIS [None]
